FAERS Safety Report 20363963 (Version 1)
Quarter: 2022Q1

REPORT INFORMATION
  Report Type: Spontaneous
  Country: HU (occurrence: HU)
  Receive Date: 20220121
  Receipt Date: 20220121
  Transmission Date: 20220423
  Serious: Yes (Other)
  Sender: FDA-Public Use
  Company Number: HU-002147023-NVSC2021HU278259

PATIENT
  Age: 46 Year
  Sex: Male

DRUGS (15)
  1. BOSUTINIB [Suspect]
     Active Substance: BOSUTINIB
     Dosage: UNK
     Route: 065
     Dates: start: 20211106
  2. VITAMIN D3 [Suspect]
     Active Substance: CHOLECALCIFEROL
     Dosage: 6000 IU, 1X/DAY
     Route: 065
  3. TASIGNA [Suspect]
     Active Substance: NILOTINIB
     Dosage: 300 MG, 2X/DAY
     Route: 065
     Dates: start: 20210304, end: 2021
  4. DOXYCYCLINE [Concomitant]
     Active Substance: DOXYCYCLINE
     Dosage: 100 MG, 1X/DAY
     Route: 065
     Dates: start: 202102, end: 202102
  5. AMBROXOL [Concomitant]
     Active Substance: AMBROXOL
     Dosage: UNK
     Route: 065
  6. ENOXAPARIN SODIUM [Concomitant]
     Active Substance: ENOXAPARIN SODIUM
     Dosage: 0.4 ML, 1X/DAY
     Route: 065
  7. ASPIRIN [Concomitant]
     Active Substance: ASPIRIN
     Dosage: 100 MG, 1X/DAY
     Route: 065
  8. ALLOPURINOL [Concomitant]
     Active Substance: ALLOPURINOL
     Dosage: 100 MG, 3X/DAY
     Route: 065
  9. HYDROXYUREA [Concomitant]
     Active Substance: HYDROXYUREA
     Dosage: UNK
     Route: 065
  10. SACCHAROMYCES CEREVISIAE [Concomitant]
     Active Substance: SACCHAROMYCES CEREVISIAE
     Dosage: 1 DF, 2X/DAY
     Route: 065
  11. HYDROXYUREA [Concomitant]
     Active Substance: HYDROXYUREA
     Dosage: 500 MG, 3X/DAY
     Route: 065
     Dates: start: 20210304
  12. METOPROLOL TARTRATE [Concomitant]
     Active Substance: METOPROLOL TARTRATE
     Dosage: UNK
     Route: 065
  13. COVEREX AS KOMB [Concomitant]
     Dosage: UNK
     Route: 065
  14. PERINDOPRIL ERBUMINE [Concomitant]
     Active Substance: PERINDOPRIL ERBUMINE
     Dosage: UNK
     Route: 065
  15. VITAMIN C [Concomitant]
     Active Substance: ASCORBIC ACID
     Dosage: 2 G, 1X/DAY
     Route: 065

REACTIONS (7)
  - COVID-19 [Recovered/Resolved]
  - Pneumonia [Recovered/Resolved]
  - Cough [Unknown]
  - Fatigue [Unknown]
  - Pyrexia [Recovered/Resolved]
  - Neoplasm progression [Unknown]
  - Cytogenetic analysis abnormal [Unknown]
